FAERS Safety Report 8343189-4 (Version None)
Quarter: 2012Q2

REPORT INFORMATION
  Report Type: 
  Country: None (occurrence: None)
  Receive Date: 20120508
  Receipt Date: 20120507
  Transmission Date: 20120825
  Serious: Yes (Hospitalization)
  Sender: FDA-Public Use
  Company Number: ES-PFIZER INC-2012110681

PATIENT
  Age: 79 Year
  Sex: Female

DRUGS (5)
  1. DIGOXIN [Interacting]
     Dosage: UNK
     Route: 048
     Dates: start: 20090101, end: 20100102
  2. FLUTICASONE PROPIONATE/SALMETEROL [Concomitant]
     Dosage: 25 A?G/50 A?G
     Route: 055
     Dates: start: 20090101, end: 20100102
  3. NOCTAMID [Interacting]
     Dosage: UNK
     Route: 048
     Dates: start: 20090101, end: 20100102
  4. ALDACTONE [Suspect]
     Indication: HYPERTENSION
     Dosage: 25 MG, UNK
     Route: 048
     Dates: start: 20090101, end: 20100102
  5. PAROXETINE [Interacting]
     Dosage: UNK
     Route: 048
     Dates: start: 20090101, end: 20100102

REACTIONS (6)
  - HYPERNATRAEMIA [None]
  - DEHYDRATION [None]
  - TOXICITY TO VARIOUS AGENTS [None]
  - SOMNOLENCE [None]
  - DRUG INTERACTION [None]
  - GENERAL PHYSICAL HEALTH DETERIORATION [None]
